FAERS Safety Report 21753364 (Version 1)
Quarter: 2022Q4

REPORT INFORMATION
  Report Type: Spontaneous
  Country: US (occurrence: None)
  Receive Date: 20221219
  Receipt Date: 20221219
  Transmission Date: 20230112
  Serious: Yes (Hospitalization)
  Sender: FDA-Public Use
  Company Number: None

PATIENT
  Age: 87 Year
  Sex: Female
  Weight: 85.63 kg

DRUGS (1)
  1. FERAHEME [Suspect]
     Active Substance: FERUMOXYTOL NON-STOICHIOMETRIC MAGNETITE
     Indication: Anaemia
     Route: 041
     Dates: start: 20221216, end: 20221216

REACTIONS (3)
  - Loss of consciousness [None]
  - Wheezing [None]
  - Unresponsive to stimuli [None]

NARRATIVE: CASE EVENT DATE: 20221216
